APPROVED DRUG PRODUCT: DOXYCYCLINE HYCLATE
Active Ingredient: DOXYCYCLINE HYCLATE
Strength: EQ 100MG BASE
Dosage Form/Route: TABLET;ORAL
Application: A062538 | Product #001 | TE Code: AB
Applicant: STRIDES PHARMA INTERNATIONAL AG
Approved: Apr 7, 1986 | RLD: No | RS: No | Type: RX